FAERS Safety Report 12242810 (Version 2)
Quarter: 2017Q1

REPORT INFORMATION
  Report Type: Spontaneous
  Country: US (occurrence: US)
  Receive Date: 20160406
  Receipt Date: 20170118
  Transmission Date: 20170428
  Serious: Yes (Hospitalization, Other)
  Sender: FDA-Public Use
  Company Number: US-ELI_LILLY_AND_COMPANY-US201604001428

PATIENT
  Sex: Female

DRUGS (3)
  1. CYMBALTA [Suspect]
     Active Substance: DULOXETINE HYDROCHLORIDE
     Indication: DEPRESSION
     Dosage: 30 MG, QD
     Route: 048
     Dates: start: 20060501, end: 20060502
  2. CYMBALTA [Suspect]
     Active Substance: DULOXETINE HYDROCHLORIDE
     Indication: PAIN
     Dosage: 60 MG, EACH MORNING
     Route: 048
     Dates: start: 20060502
  3. CYMBALTA [Suspect]
     Active Substance: DULOXETINE HYDROCHLORIDE
     Dosage: 20 MG, OTHER
     Route: 048
     Dates: end: 20151001

REACTIONS (23)
  - Paraesthesia [Unknown]
  - Chills [Unknown]
  - Dysphoria [Unknown]
  - Agitation [Unknown]
  - Tremor [Unknown]
  - Nausea [Unknown]
  - Mood swings [Unknown]
  - Irritability [Unknown]
  - Arthralgia [Unknown]
  - Suicidal ideation [Unknown]
  - Suicide attempt [Unknown]
  - Drug withdrawal syndrome [Unknown]
  - Insomnia [Unknown]
  - Dizziness [Unknown]
  - Headache [Unknown]
  - Sensory disturbance [Unknown]
  - Nightmare [Unknown]
  - Sleep disorder [Unknown]
  - Appetite disorder [Unknown]
  - Hyperhidrosis [Unknown]
  - Influenza like illness [Unknown]
  - Anxiety [Unknown]
  - Vertigo [Unknown]
